FAERS Safety Report 8469313-0 (Version None)
Quarter: 2012Q2

REPORT INFORMATION
  Report Type: 
  Country: None (occurrence: None)
  Receive Date: 20120626
  Receipt Date: 20120614
  Transmission Date: 20120825
  Serious: No
  Sender: FDA-Public Use
  Company Number: US-ASTRAZENECA-2012SE39983

PATIENT
  Age: 59 Year
  Sex: Female
  Weight: 86.2 kg

DRUGS (3)
  1. SINGULAIR [Concomitant]
     Indication: ASTHMA
  2. CRESTOR [Suspect]
     Route: 048
  3. CRESTOR [Suspect]
     Indication: BLOOD CHOLESTEROL
     Route: 048

REACTIONS (2)
  - URTICARIA [None]
  - ASTHMA [None]
